FAERS Safety Report 4797067-8 (Version None)
Quarter: 2005Q4

REPORT INFORMATION
  Report Type: 
  Country: None (occurrence: None)
  Receive Date: 20051013
  Receipt Date: 20051003
  Transmission Date: 20060501
  Serious: Yes (Hospitalization, Disabling)
  Sender: FDA-Public Use
  Company Number: US-MERCK-0510USA02185

PATIENT
  Age: 62 Year
  Sex: Male
  Weight: 84 kg

DRUGS (49)
  1. CIPRO [Concomitant]
     Route: 065
  2. CLARITIN [Concomitant]
     Route: 065
  3. LIPITOR [Concomitant]
     Route: 065
  4. ATARAX [Concomitant]
     Route: 065
  5. BACTRIM [Concomitant]
     Route: 065
  6. PROCAINAMIDE HYDROCHLORIDE [Concomitant]
     Route: 065
  7. K-DUR 10 [Concomitant]
     Route: 065
  8. PRINIVIL [Concomitant]
     Route: 065
  9. ULTRAM [Concomitant]
     Route: 065
  10. COUMADIN [Concomitant]
     Route: 065
  11. VICODIN [Concomitant]
     Route: 065
  12. MEDROL [Concomitant]
     Route: 065
  13. AUGMENTIN '125' [Concomitant]
     Route: 065
  14. AMOXICILLIN [Concomitant]
     Route: 065
  15. MOTRIN [Concomitant]
     Route: 065
  16. PERCOCET [Concomitant]
     Route: 065
  17. LEVAQUIN [Concomitant]
     Route: 065
  18. COMPAZINE [Concomitant]
     Route: 065
  19. VIAGRA [Concomitant]
     Route: 065
  20. [THERAPY UNSPECIFIED] [Concomitant]
     Route: 065
  21. VERELAN [Concomitant]
     Route: 065
  22. ATIVAN [Concomitant]
     Route: 065
  23. LANOXIN [Concomitant]
     Route: 065
  24. FLOMAX (MORNIFLUMATE) [Concomitant]
     Route: 065
  25. NIASPAN [Concomitant]
     Route: 065
  26. COREG [Concomitant]
     Route: 065
  27. LOTENSIN [Concomitant]
     Route: 065
  28. PREVACID [Concomitant]
     Route: 065
  29. RESTORIL [Concomitant]
     Route: 065
  30. LASIX [Concomitant]
     Route: 065
  31. PRAVACHOL [Concomitant]
     Route: 065
  32. LEVOXYL [Concomitant]
     Route: 065
  33. SYNTHROID [Concomitant]
     Route: 065
  34. AVANDIA [Concomitant]
     Route: 065
  35. TESSALON [Concomitant]
     Route: 065
  36. XANAX [Concomitant]
     Route: 065
  37. DESYREL [Concomitant]
     Route: 065
  38. DARVOCET-N 100 [Concomitant]
     Route: 065
  39. LOPRESSOR [Concomitant]
     Route: 065
  40. GLUCOTROL [Concomitant]
     Route: 065
  41. FLEXERIL [Concomitant]
     Route: 065
  42. VIOXX [Suspect]
     Indication: ARTHROPATHY
     Route: 048
     Dates: start: 20030210, end: 20040729
  43. VIOXX [Suspect]
     Indication: JOINT INJURY
     Route: 048
     Dates: start: 19991207, end: 20030210
  44. VIOXX [Suspect]
     Route: 048
     Dates: start: 20030210, end: 20040729
  45. ASPIRIN [Concomitant]
     Route: 065
  46. ZANTAC [Concomitant]
     Route: 065
  47. CEPHALEXIN [Concomitant]
     Route: 065
  48. ZOVIRAX [Concomitant]
     Route: 065
  49. VIOXX [Suspect]
     Route: 048
     Dates: start: 19991207, end: 20030210

REACTIONS (3)
  - ARTHROPATHY [None]
  - JOINT INJURY [None]
  - MYOCARDIAL INFARCTION [None]
